FAERS Safety Report 7240060-6 (Version None)
Quarter: 2011Q1

REPORT INFORMATION
  Report Type: 
  Country: None (occurrence: None)
  Receive Date: 20110124
  Receipt Date: 20110114
  Transmission Date: 20110831
  Serious: No
  Sender: FDA-Public Use
  Company Number: US-BIOGENIDEC-2011BI001787

PATIENT
  Age: 31 Year
  Sex: Female

DRUGS (4)
  1. COPAXONE [Concomitant]
     Indication: MULTIPLE SCLEROSIS
     Dates: start: 20070101, end: 20080101
  2. AVONEX [Suspect]
     Indication: MULTIPLE SCLEROSIS
     Route: 030
     Dates: start: 20060601, end: 20070201
  3. ATIVAN [Concomitant]
     Indication: MUSCLE SPASMS
  4. XANAX [Concomitant]
     Indication: MENTAL DISORDER

REACTIONS (2)
  - PYREXIA [None]
  - PARALYSIS [None]
